FAERS Safety Report 21710692 (Version 2)
Quarter: 2022Q4

REPORT INFORMATION
  Report Type: Other
  Country: US (occurrence: None)
  Receive Date: 20221212
  Receipt Date: 20221213
  Transmission Date: 20230112
  Serious: No
  Sender: FDA-Public Use
  Company Number: US-ROCHE-2877476

PATIENT
  Age: 47 Year
  Sex: Female
  Weight: 64.922 kg

DRUGS (6)
  1. OCREVUS [Suspect]
     Active Substance: OCRELIZUMAB
     Indication: Relapsing-remitting multiple sclerosis
     Dosage: YES; THEN 600 MG FOR EVERY 6 MONTHS, DATE OF SERVICE: 01/DEC/2020, 15/DEC/2020, 17/AUG/2021, 09/MAR/
     Route: 042
     Dates: start: 2020
  2. VALIUM [Concomitant]
     Active Substance: DIAZEPAM
     Indication: Dizziness
     Route: 065
  3. DYSPORT [Concomitant]
     Active Substance: ABOBOTULINUMTOXINA
     Indication: Migraine
  4. ORENCIA [Concomitant]
     Active Substance: ABATACEPT
  5. DEXAMETHASONE [Concomitant]
     Active Substance: DEXAMETHASONE
  6. CEFTIN [Concomitant]
     Active Substance: CEFUROXIME AXETIL

REACTIONS (3)
  - Arthralgia [Not Recovered/Not Resolved]
  - Dizziness [Recovered/Resolved]
  - Influenza [Not Recovered/Not Resolved]

NARRATIVE: CASE EVENT DATE: 20221125
